FAERS Safety Report 14422635 (Version 3)
Quarter: 2018Q4

REPORT INFORMATION
  Report Type: Report from Study
  Country: US (occurrence: US)
  Receive Date: 20180123
  Receipt Date: 20181022
  Transmission Date: 20190204
  Serious: Yes (Other)
  Sender: FDA-Public Use
  Company Number: US-ROCHE-2054266

PATIENT
  Sex: Female

DRUGS (7)
  1. VITAMIN C [Concomitant]
     Active Substance: ASCORBIC ACID
  2. ESBRIET [Suspect]
     Active Substance: PIRFENIDONE
     Dosage: FOR 5 DAYS
     Route: 048
     Dates: start: 2017
  3. VALSARTAN. [Concomitant]
     Active Substance: VALSARTAN
  4. FLAXSEED [Concomitant]
     Active Substance: FLAX SEED
  5. ESBRIET [Suspect]
     Active Substance: PIRFENIDONE
     Dosage: 3 TABS ON DAY 15, AS DIRECTED
     Route: 048
  6. ESBRIET [Suspect]
     Active Substance: PIRFENIDONE
     Dosage: 2 TABLETS ON DAY 8-14, AS DIRECTED
     Route: 048
  7. ESBRIET [Suspect]
     Active Substance: PIRFENIDONE
     Indication: IDIOPATHIC PULMONARY FIBROSIS
     Dosage: AS DIRECTED, DAY 1-7
     Route: 048
     Dates: start: 20171212

REACTIONS (4)
  - Ocular icterus [Recovered/Resolved]
  - Pain [Recovered/Resolved]
  - Liver disorder [Unknown]
  - Hepatic pain [Recovered/Resolved]

NARRATIVE: CASE EVENT DATE: 2017
